FAERS Safety Report 7154748-9 (Version None)
Quarter: 2010Q4

REPORT INFORMATION
  Report Type: 
  Country: None (occurrence: None)
  Receive Date: 20101214
  Receipt Date: 20091106
  Transmission Date: 20110411
  Serious: No
  Sender: FDA-Public Use
  Company Number: US-AMGEN-KDL373316

PATIENT

DRUGS (8)
  1. ENBREL [Suspect]
     Indication: PRODUCT USED FOR UNKNOWN INDICATION
     Dosage: 50 MG, QWK
     Route: 058
  2. CENTRUM SILVER [Concomitant]
     Dosage: UNK UNK, UNK
  3. TARKA [Concomitant]
     Dosage: UNK UNK, UNK
  4. INDAPAMIDE [Concomitant]
     Dosage: 2.5 MG, UNK
  5. ALBUTEROL SULFATE [Concomitant]
     Dosage: 90 A?G, UNK
  6. FLUTICASONE/SALMETEROL [Concomitant]
  7. ALLOPURINOL [Concomitant]
     Dosage: 100 MG, UNK
  8. FISH OIL [Concomitant]
     Dosage: UNK UNK, UNK

REACTIONS (5)
  - HEADACHE [None]
  - OCULAR HYPERAEMIA [None]
  - PRURITUS [None]
  - RASH [None]
  - URTICARIA [None]
